FAERS Safety Report 16401771 (Version 3)
Quarter: 2019Q3

REPORT INFORMATION
  Report Type: Report from Study
  Country: None (occurrence: BE)
  Receive Date: 20190606
  Receipt Date: 20190805
  Transmission Date: 20191004
  Serious: Yes (Death, Hospitalization, Other)
  Sender: FDA-Public Use
  Company Number: BE-ABBVIE-19K-013-2808245-00

PATIENT
  Sex: Male
  Weight: 52 kg

DRUGS (11)
  1. LITICAN [Concomitant]
     Active Substance: ALIZAPRIDE HYDROCHLORIDE
     Indication: SUPPORTIVE CARE
     Dosage: IF NEEDED (PRO RE NATA)
     Route: 042
     Dates: start: 20190528, end: 20190601
  2. ATROVENT [Concomitant]
     Active Substance: IPRATROPIUM BROMIDE
     Indication: SUPPORTIVE CARE
     Dosage: 0,25 MG / 2 ML
     Dates: start: 20190602, end: 20190602
  3. VENCLYXTO [Suspect]
     Active Substance: VENETOCLAX
     Indication: MANTLE CELL LYMPHOMA
     Route: 048
     Dates: start: 20180516, end: 20190530
  4. MORFINE [Concomitant]
     Active Substance: MORPHINE
     Indication: SUPPORTIVE CARE
     Dosage: CONTINUOUSLY
     Route: 042
     Dates: start: 20190603, end: 20190603
  5. DAFALGAN [Concomitant]
     Active Substance: ACETAMINOPHEN
     Indication: SUPPORTIVE CARE
     Dosage: CONTINUOUSLY
     Route: 048
     Dates: start: 20190528, end: 20190603
  6. PIPERACILLIN/TAZOBACTAM FRESENIUS K [Concomitant]
     Indication: PROPHYLAXIS
     Route: 042
     Dates: start: 20190530, end: 20190601
  7. LASIX [Concomitant]
     Active Substance: FUROSEMIDE
     Indication: SUPPORTIVE CARE
     Route: 042
     Dates: start: 20190531, end: 20190531
  8. DUROGESIC [Concomitant]
     Active Substance: FENTANYL
     Indication: SUPPORTIVE CARE
     Dosage: CONTINUOUSLY
     Route: 062
     Dates: start: 20190530, end: 20190604
  9. CONTRAMAL [Concomitant]
     Active Substance: TRAMADOL HYDROCHLORIDE
     Indication: SUPPORTIVE CARE
     Dosage: 100 MG PER 24HOURS
     Route: 042
     Dates: start: 20190530, end: 20190602
  10. CLEXANE [Concomitant]
     Active Substance: ENOXAPARIN SODIUM
     Indication: SUPPORTIVE CARE
     Route: 058
     Dates: start: 20190529, end: 20190602
  11. OXYNORM [Concomitant]
     Active Substance: OXYCODONE HYDROCHLORIDE
     Indication: SUPPORTIVE CARE
     Route: 048
     Dates: start: 20190530, end: 20190531

REACTIONS (6)
  - Staphylococcal bacteraemia [Unknown]
  - Pneumocystis jirovecii pneumonia [Unknown]
  - Off label use [Unknown]
  - Oral candidiasis [Unknown]
  - Terminal state [Fatal]
  - Mantle cell lymphoma [Fatal]

NARRATIVE: CASE EVENT DATE: 20180707
